FAERS Safety Report 22620885 (Version 1)
Quarter: 2023Q2

REPORT INFORMATION
  Report Type: Spontaneous
  Country: JP (occurrence: JP)
  Receive Date: 20230620
  Receipt Date: 20230620
  Transmission Date: 20230722
  Serious: Yes (Hospitalization, Other)
  Sender: FDA-Public Use
  Company Number: JP-IPSEN Group, Research and Development-2023-15022

PATIENT
  Age: 67 Year
  Sex: Female

DRUGS (15)
  1. LANREOTIDE ACETATE [Suspect]
     Active Substance: LANREOTIDE ACETATE
     Indication: Thyroid stimulating hormone-producing pituitary tumour
     Route: 058
     Dates: start: 20230509, end: 20230509
  2. LANREOTIDE ACETATE [Suspect]
     Active Substance: LANREOTIDE ACETATE
     Indication: Pituitary tumour
  3. PARLODEL [Concomitant]
     Active Substance: BROMOCRIPTINE MESYLATE
     Dosage: AFTER EACH MEAL, TUBE ADMINISTRATION OTHER NI
  4. PROPYLTHIOURACIL [Concomitant]
     Active Substance: PROPYLTHIOURACIL
     Dosage: TWICE PER DAY (AFTER BREAKFAST AND SUPPER), TUBE ADMINISTRATION OTHER NI NI-NI
  5. CABERGOLINE [Concomitant]
     Active Substance: CABERGOLINE
     Dosage: (BEFORE BEDTIME), TUBE ADMINISTRATION OTHER NI NI-N
  6. URSO [Concomitant]
     Active Substance: URSODIOL
     Dosage: THREE TIMES PER DAY (AFTER EACH MEAL), TUBE ADMINISTRATION OTHER NI NI-N
  7. ALLOID G [Concomitant]
     Active Substance: SODIUM ALGINATE
     Dosage: THREE TIMES PER DAY (AFTER EACH MEAL), TUBE ADMINISTRATION OTHER NI NI-NI
  8. IRRIBOW OD [Concomitant]
     Dosage: PER DAY (AFTER BREAKFAST), TUBE ADMINISTRATION OTHER NI NI-NI
  9. CARBOCYSTEINE [Concomitant]
     Active Substance: CARBOCYSTEINE
     Dosage: THREE TIMES PER DAY (AFTER EACH MEAL), TUBE ADMINISTRATION OTHER NI NI-N
  10. CALONAL [Concomitant]
     Active Substance: ACETAMINOPHEN
     Dosage: FOUR TIMES PER DAY (AFTER EACH MEAL, BEFORE BEDTIME), TUBE ADMINISTRATION OTHER NI NI-NI
  11. POTASSIUM GLUCONATE [Concomitant]
     Active Substance: POTASSIUM GLUCONATE
     Dosage: THREE TIMES PER DAY (AFTER EACH MEAL), TUBE ADMINISTRATION OTHER NI NI-NI
  12. VONOPRAZAN FUMARATE [Concomitant]
     Active Substance: VONOPRAZAN FUMARATE
     Dosage: PER DAY (AFTER BREAKFAST), TUBE ADMINISTRATION OTHER NI NI-NI
  13. DIETARY SUPPLEMENT\PROBIOTICS [Concomitant]
     Active Substance: DIETARY SUPPLEMENT\PROBIOTICS NOS
     Dosage: THREE TIMES PER DAY (AFTER EACH MEAL), TUBE ADMINISTRATION OTHER NI NI-NI
  14. BISOPROLOL [Concomitant]
     Active Substance: BISOPROLOL
  15. FOSRENOL [Concomitant]
     Active Substance: LANTHANUM CARBONATE
     Dosage: THREE TIMES PER DAY (IMMEDIATELY AFTER EACH MEAL), TUBE ADMINISTRATION OTHER NI?NI-NI

REACTIONS (4)
  - Portal venous gas [Not Recovered/Not Resolved]
  - Gastrointestinal hypomotility [Not Recovered/Not Resolved]
  - Intestinal ischaemia [Not Recovered/Not Resolved]
  - Prescribed underdose [Unknown]

NARRATIVE: CASE EVENT DATE: 20230510
